FAERS Safety Report 6094512-5 (Version None)
Quarter: 2009Q1

REPORT INFORMATION
  Report Type: 
  Country: None (occurrence: None)
  Receive Date: 20090224
  Receipt Date: 20090204
  Transmission Date: 20090719
  Serious: Yes (Hospitalization)
  Sender: FDA-Public Use
  Company Number: 200828926GPV

PATIENT
  Age: 52 Year
  Sex: Female

DRUGS (6)
  1. FLUDARA [Suspect]
     Indication: CHRONIC LYMPHOCYTIC LEUKAEMIA
     Dosage: 70 MG, ORAL
     Route: 048
     Dates: start: 20080616, end: 20080618
  2. FLUDARA [Suspect]
     Indication: CHRONIC LYMPHOCYTIC LEUKAEMIA
     Dosage: 70 MG, ORAL
     Route: 048
     Dates: start: 20080114
  3. CAMPATH [Suspect]
     Indication: CHRONIC LYMPHOCYTIC LEUKAEMIA
     Dosage: 30 MG SUBCUTANEOUS
     Route: 058
     Dates: start: 20080116, end: 20080118
  4. CAMPATH [Suspect]
     Indication: CHRONIC LYMPHOCYTIC LEUKAEMIA
     Dosage: 30 MG SUBCUTANEOUS
     Route: 058
     Dates: start: 20080114
  5. CYCLOPHOSPHAMIDE [Suspect]
     Indication: CHRONIC LYMPHOCYTIC LEUKAEMIA
     Dosage: 450 MG, ORAL
     Route: 048
     Dates: start: 20080616, end: 20080618
  6. CYCLOPHOSPHAMIDE [Suspect]
     Indication: CHRONIC LYMPHOCYTIC LEUKAEMIA
     Dosage: 450 MG, ORAL
     Route: 048
     Dates: start: 20080114

REACTIONS (1)
  - ACARODERMATITIS [None]
